FAERS Safety Report 10267334 (Version 1)
Quarter: 2014Q2

REPORT INFORMATION
  Report Type: Spontaneous
  Country: GB (occurrence: GB)
  Receive Date: 20140630
  Receipt Date: 20140630
  Transmission Date: 20141212
  Serious: Yes (Other)
  Sender: FDA-Public Use
  Company Number: GB-DRREDDYS-GER/UKI/14/0041392

PATIENT
  Age: 1 Year
  Sex: Female
  Weight: 12.7 kg

DRUGS (1)
  1. LEVETIRACETAM [Suspect]
     Indication: EPILEPSY
     Route: 048
     Dates: start: 20140426, end: 20140522

REACTIONS (2)
  - Dyskinesia [Recovered/Resolved]
  - Irritability [Unknown]
